FAERS Safety Report 8974690 (Version 1)
Quarter: 2012Q4

REPORT INFORMATION
  Report Type: Spontaneous
  Country: US (occurrence: None)
  Receive Date: 20121217
  Receipt Date: 20121217
  Transmission Date: 20130627
  Serious: Yes (Life-Threatening, Hospitalization)
  Sender: FDA-Public Use
  Company Number: None

PATIENT
  Age: 63 Year
  Sex: Male
  Weight: 83 kg

DRUGS (1)
  1. HALOPERIDOL LACTATE [Suspect]
     Indication: DELIRIUM
     Dosage: 5 mg x1 IV
     Route: 042
     Dates: start: 20121210, end: 20121212

REACTIONS (4)
  - Nuchal rigidity [None]
  - Mental status changes [None]
  - Pyrexia [None]
  - Neuroleptic malignant syndrome [None]
